FAERS Safety Report 17988847 (Version 1)
Quarter: 2020Q3

REPORT INFORMATION
  Report Type: Spontaneous
  Country: US (occurrence: US)
  Receive Date: 20200707
  Receipt Date: 20200707
  Transmission Date: 20201103
  Serious: Yes (Other)
  Sender: FDA-Public Use
  Company Number: US-PFIZER INC-2020259544

PATIENT
  Sex: Female

DRUGS (1)
  1. XANAX [Suspect]
     Active Substance: ALPRAZOLAM
     Dosage: UNK

REACTIONS (8)
  - Fall [Unknown]
  - Agoraphobia [Unknown]
  - Drug abuser [Unknown]
  - Intervertebral disc protrusion [Unknown]
  - Poisoning [Unknown]
  - Nerve compression [Unknown]
  - Limb discomfort [Unknown]
  - Breakthrough pain [Unknown]
